FAERS Safety Report 8294058-X (Version None)
Quarter: 2012Q2

REPORT INFORMATION
  Report Type: 
  Country: None (occurrence: None)
  Receive Date: 20120413
  Receipt Date: 20120413
  Transmission Date: 20120825
  Serious: No
  Sender: FDA-Public Use
  Company Number: None

PATIENT
  Age: 52 Year
  Sex: Female

DRUGS (2)
  1. TRIMETHOPRIM + SULFAMETHOXAZOLE [Suspect]
     Dates: start: 20040827, end: 20040911
  2. LEVAQUIN [Suspect]
     Dates: start: 20040901, end: 20040903

REACTIONS (6)
  - ACUTE RESPIRATORY DISTRESS SYNDROME [None]
  - RENAL TUBULAR NECROSIS [None]
  - RENAL FAILURE [None]
  - FEBRILE NEUTROPENIA [None]
  - LIVER INJURY [None]
  - HEPATITIS CHOLESTATIC [None]
